FAERS Safety Report 9135623 (Version 1)
Quarter: 2013Q1

REPORT INFORMATION
  Report Type: Spontaneous
  Country: FR (occurrence: FR)
  Receive Date: 20130304
  Receipt Date: 20130304
  Transmission Date: 20140127
  Serious: Yes (Hospitalization)
  Sender: FDA-Public Use
  Company Number: FR-ASTRAZENECA-2013SE12058

PATIENT
  Age: 16 Year
  Sex: Male

DRUGS (1)
  1. XEROQUEL [Suspect]
     Indication: PARANOIA
     Route: 048
     Dates: start: 20121214, end: 20121219

REACTIONS (2)
  - Hepatocellular injury [Recovered/Resolved]
  - Hypersensitivity [Not Recovered/Not Resolved]
